FAERS Safety Report 4413119-6 (Version None)
Quarter: 2004Q3

REPORT INFORMATION
  Report Type: 
  Country: None (occurrence: None)
  Receive Date: 20040727
  Receipt Date: 20040714
  Transmission Date: 20050211
  Serious: Yes (Other)
  Sender: FDA-Public Use
  Company Number: 2004223765US

PATIENT
  Age: 48 Year
  Sex: Female

DRUGS (4)
  1. PROVERA [Suspect]
     Indication: MENSTRUAL DISORDER
  2. ESTRACE [Suspect]
     Indication: MENSTRUAL DISORDER
  3. CYCRIN [Suspect]
     Indication: MENSTRUAL DISORDER
  4. ESTRADIOL [Suspect]
     Indication: MENSTRUAL DISORDER

REACTIONS (1)
  - BREAST CANCER FEMALE [None]
